FAERS Safety Report 17792357 (Version 1)
Quarter: 2020Q2

REPORT INFORMATION
  Report Type: Spontaneous
  Country: FR (occurrence: FR)
  Receive Date: 20200515
  Receipt Date: 20200515
  Transmission Date: 20200714
  Serious: Yes (Other)
  Sender: FDA-Public Use
  Company Number: FR-PFIZER INC-2020193184

PATIENT
  Age: 26 Year
  Sex: Male

DRUGS (1)
  1. LYRICA [Suspect]
     Active Substance: PREGABALIN
     Indication: AFFECTIVE DISORDER
     Dosage: 150 MG, 1X/DAY
     Route: 065

REACTIONS (4)
  - Drug use disorder [Not Recovered/Not Resolved]
  - Off label use [Unknown]
  - Prescription drug used without a prescription [Not Recovered/Not Resolved]
  - Product use in unapproved indication [Unknown]
